FAERS Safety Report 8763042 (Version 2)
Quarter: 2012Q4

REPORT INFORMATION
  Report Type: Spontaneous
  Country: JP (occurrence: None)
  Receive Date: 20120827
  Receipt Date: 20120905
  Transmission Date: 20130627
  Serious: Yes (Life-Threatening, Other)
  Sender: FDA-Public Use
  Company Number: 2012P1054806

PATIENT
  Age: 72 Year
  Sex: Female

DRUGS (22)
  1. ZANTAC [Suspect]
     Indication: CHEMOTHERAPY
     Route: 042
     Dates: start: 20120710, end: 20120710
  2. ZANTAC [Suspect]
     Indication: PREMEDICATION
     Route: 042
     Dates: start: 20120710, end: 20120710
  3. ZANTAC [Suspect]
     Indication: CHEMOTHERAPY
     Route: 042
     Dates: start: 20120731, end: 20120731
  4. ZANTAC [Suspect]
     Indication: PREMEDICATION
     Route: 042
     Dates: start: 20120731, end: 20120731
  5. ZANTAC [Suspect]
     Indication: CHEMOTHERAPY
     Route: 042
     Dates: start: 20120814, end: 20120814
  6. ZANTAC [Suspect]
     Indication: PREMEDICATION
     Route: 042
     Dates: start: 20120814, end: 20120814
  7. CARBOPLATIN [Suspect]
     Indication: UTERINE CANCER
     Route: 042
     Dates: start: 20120710, end: 20120710
  8. CARBOPLATIN [Suspect]
     Indication: UTERINE CANCER
     Route: 042
     Dates: start: 20120731, end: 20120731
  9. SODIUM CHLORIDE [Suspect]
     Indication: CHEMOTHERAPY
     Dosage: 1 bottle
     Dates: start: 20120710, end: 20120710
  10. SODIUM CHLORIDE [Suspect]
     Indication: PREMEDICATION
     Dosage: 1 bottle
     Dates: start: 20120710, end: 20120710
  11. SODIUM CHLORIDE [Suspect]
     Indication: CHEMOTHERAPY
     Dates: start: 20120731, end: 20120731
  12. SODIUM CHLORIDE [Suspect]
     Indication: PREMEDICATION
     Dates: start: 20120731, end: 20120731
  13. SODIUM CHLORIDE [Suspect]
     Indication: CHEMOTHERAPY
     Dates: start: 20120814, end: 20120814
  14. SODIUM CHLORIDE [Suspect]
     Indication: PREMEDICATION
     Dates: start: 20120814, end: 20120814
  15. DEXAMETHASONE [Suspect]
     Indication: CHEMOTHERAPY
     Dosage: 3 bottles
     Dates: start: 20120710, end: 20120710
  16. DEXAMETHASONE [Suspect]
     Indication: PREMEDICATION
     Dosage: 3 bottles
     Dates: start: 20120710, end: 20120710
  17. DEXAMETHASONE [Suspect]
     Indication: CHEMOTHERAPY
     Dosage: 3 bottles
     Dates: start: 20120731, end: 20120731
  18. DEXAMETHASONE [Suspect]
     Indication: PREMEDICATION
     Dosage: 3 bottles
     Dates: start: 20120731, end: 20120731
  19. DEXAMETHASONE [Suspect]
     Indication: CHEMOTHERAPY
     Dates: start: 20120814, end: 20120814
  20. DEXAMETHASONE [Suspect]
     Indication: PREMEDICATION
     Dates: start: 20120814, end: 20120814
  21. PACLITAXEL [Suspect]
     Indication: UTERINE CANCER
     Dates: start: 20120731, end: 20120731
  22. PACLITAXEL [Suspect]
     Indication: UTERINE CANCER
     Dates: start: 20120710, end: 20120710

REACTIONS (5)
  - Shock [None]
  - Dyspnoea [None]
  - Blood pressure decreased [None]
  - Anaphylactic shock [None]
  - Infusion related reaction [None]
